FAERS Safety Report 12141024 (Version 3)
Quarter: 2016Q2

REPORT INFORMATION
  Report Type: Report from Study
  Country: US (occurrence: US)
  Receive Date: 20160303
  Receipt Date: 20160406
  Transmission Date: 20160815
  Serious: Yes (Death, Hospitalization, Other)
  Sender: FDA-Public Use
  Company Number: US-BAYER-2015-498396

PATIENT
  Age: 67 Year
  Sex: Female
  Weight: 83.9 kg

DRUGS (4)
  1. OPSUMIT [Concomitant]
     Active Substance: MACITENTAN
     Dosage: UNK
  2. APIXABAN [Concomitant]
     Active Substance: APIXABAN
  3. ADEMPAS [Suspect]
     Active Substance: RIOCIGUAT
     Indication: PULMONARY ARTERIAL HYPERTENSION
     Dosage: 0.5 MG, TID (LAST SHIPPED:12/10/2015 )
     Route: 048
     Dates: start: 20151210, end: 201512
  4. ADEMPAS [Suspect]
     Active Substance: RIOCIGUAT
     Indication: PULMONARY ARTERIAL HYPERTENSION
     Dosage: UNK
     Route: 048

REACTIONS (8)
  - Oedema peripheral [Unknown]
  - Blood pressure decreased [Unknown]
  - Death [Fatal]
  - Dyspnoea at rest [Unknown]
  - Rales [Unknown]
  - Coma [Unknown]
  - Headache [Unknown]
  - Decreased appetite [Unknown]

NARRATIVE: CASE EVENT DATE: 20160311
